FAERS Safety Report 4906969-0 (Version None)
Quarter: 2006Q1

REPORT INFORMATION
  Report Type: 
  Country: None (occurrence: None)
  Receive Date: 20060207
  Receipt Date: 20060124
  Transmission Date: 20060701
  Serious: Yes (Hospitalization, Other)
  Sender: FDA-Public Use
  Company Number: FR200601001445

PATIENT
  Age: 52 Year
  Sex: Male
  Weight: 70 kg

DRUGS (6)
  1. ZYPREXA [Suspect]
     Indication: DELUSION
     Dosage: 15 MG, DAILY (1/D), ORAL
     Route: 048
     Dates: start: 20030301, end: 20051201
  2. ARTANE [Concomitant]
  3. MYOLASTAN (TETRAZEPAM) [Concomitant]
  4. NOZINAN /NET/ (LEVOMEPROMAZINE) DROP [Concomitant]
  5. SEROPRAM /SCH/ (CITALOPRAM HYDROBROMIDE) [Concomitant]
  6. BOTOX PURIFIED NEUROTOXIN COMPLEX [Concomitant]

REACTIONS (2)
  - SLEEP APNOEA SYNDROME [None]
  - WEIGHT INCREASED [None]
